FAERS Safety Report 23668062 (Version 1)
Quarter: 2024Q1

REPORT INFORMATION
  Report Type: Spontaneous
  Country: RU (occurrence: RU)
  Receive Date: 20240325
  Receipt Date: 20240325
  Transmission Date: 20240409
  Serious: Yes (Other)
  Sender: FDA-Public Use
  Company Number: RU-BAYER-2024A038659

PATIENT
  Age: 31 Year
  Sex: Female

DRUGS (3)
  1. DROSPIRENONE\ETHINYL ESTRADIOL [Suspect]
     Active Substance: DROSPIRENONE\ETHINYL ESTRADIOL
     Indication: Contraception
     Dosage: 1 DF, QD
     Route: 048
     Dates: start: 202301, end: 202401
  2. DROSPIRENONE\ETHINYL ESTRADIOL [Suspect]
     Active Substance: DROSPIRENONE\ETHINYL ESTRADIOL
     Indication: Polycystic ovarian syndrome
  3. IBUPROFEN [Suspect]
     Active Substance: IBUPROFEN
     Indication: Abdominal pain
     Dosage: 3 DF, TID
     Route: 048

REACTIONS (3)
  - Ovarian neoplasm [None]
  - Abdominal pain [None]
  - Abdominal distension [None]

NARRATIVE: CASE EVENT DATE: 20230216
